FAERS Safety Report 20236002 (Version 1)
Quarter: 2021Q4

REPORT INFORMATION
  Report Type: Spontaneous
  Country: US (occurrence: US)
  Receive Date: 20211228
  Receipt Date: 20211228
  Transmission Date: 20220303
  Serious: Yes (Hospitalization, Other)
  Sender: FDA-Public Use
  Company Number: US-LUPIN PHARMACEUTICALS INC.-2021-25650

PATIENT
  Age: 94 Year
  Sex: Male

DRUGS (1)
  1. CLOBETASOL PROPIONATE [Suspect]
     Active Substance: CLOBETASOL PROPIONATE
     Indication: Pemphigoid
     Dosage: UNK
     Route: 061

REACTIONS (2)
  - Cutaneous mucormycosis [Recovered/Resolved]
  - Injection site infection [Recovered/Resolved]
